FAERS Safety Report 16304737 (Version 1)
Quarter: 2019Q2

REPORT INFORMATION
  Report Type: Spontaneous
  Country: US (occurrence: US)
  Receive Date: 20190406
  Receipt Date: 20190406
  Transmission Date: 20190711
  Serious: Yes (Hospitalization)
  Sender: FDA-Public Use
  Company Number: None

PATIENT
  Age: 54 Year
  Sex: Female
  Weight: 74.4 kg

DRUGS (1)
  1. ASPIRIN. [Suspect]
     Active Substance: ASPIRIN
     Dates: end: 20190328

REACTIONS (10)
  - Malaise [None]
  - Pyrexia [None]
  - Hyperaemia [None]
  - Oedema peripheral [None]
  - Erythema [None]
  - Cellulitis [None]
  - Skin warm [None]
  - Chills [None]
  - Induration [None]
  - Tenderness [None]

NARRATIVE: CASE EVENT DATE: 20190328
